FAERS Safety Report 21189514 (Version 1)
Quarter: 2022Q3

REPORT INFORMATION
  Report Type: Spontaneous
  Country: US (occurrence: None)
  Receive Date: 20220808
  Receipt Date: 20220808
  Transmission Date: 20221027
  Serious: No
  Sender: FDA-Public Use
  Company Number: None

PATIENT
  Sex: Female

DRUGS (3)
  1. TREMFYA [Suspect]
     Active Substance: GUSELKUMAB
     Indication: Rheumatoid arthritis
     Dosage: OTHER QUANTITY : 100/1 MG/ML;?OTHER FREQUENCY : WK 0,4, EVERY 8 WK;?
     Route: 058
     Dates: start: 20220715
  2. TREMFYA [Suspect]
     Active Substance: GUSELKUMAB
     Indication: Polyarthritis
  3. TREMFYA [Suspect]
     Active Substance: GUSELKUMAB
     Indication: Psoriatic arthropathy

REACTIONS (4)
  - Arthralgia [None]
  - Pruritus [None]
  - Skin burning sensation [None]
  - Drug ineffective [None]
